FAERS Safety Report 9704726 (Version 1)
Quarter: 2013Q4

REPORT INFORMATION
  Report Type: Spontaneous
  Country: US (occurrence: US)
  Receive Date: 20131122
  Receipt Date: 20131122
  Transmission Date: 20140711
  Serious: No
  Sender: FDA-Public Use
  Company Number: US-PFIZER INC-2013333314

PATIENT
  Age: 52 Year
  Sex: Female

DRUGS (1)
  1. XELJANZ [Suspect]
     Dosage: 10 MG, 2X/DAY (5MG - 2 PO BID)
     Route: 048
     Dates: start: 20131001

REACTIONS (1)
  - Skin infection [Unknown]
